FAERS Safety Report 4579734-4 (Version None)
Quarter: 2005Q1

REPORT INFORMATION
  Report Type: 
  Country: None (occurrence: None)
  Receive Date: 20050210
  Receipt Date: 20050127
  Transmission Date: 20050727
  Serious: Yes (Hospitalization)
  Sender: FDA-Public Use
  Company Number: CERZ-10770

PATIENT
  Age: 3 Year
  Sex: Female
  Weight: 9.5 kg

DRUGS (1)
  1. CEREZYME [Suspect]
     Indication: GAUCHER'S DISEASE
     Dosage: 1000 UNITS Q2WKS IV
     Route: 042
     Dates: start: 20011001

REACTIONS (4)
  - IMPLANT SITE INFECTION [None]
  - OXYGEN SATURATION DECREASED [None]
  - PNEUMONIA [None]
  - POOR VENOUS ACCESS [None]
